FAERS Safety Report 17249205 (Version 1)
Quarter: 2020Q1

REPORT INFORMATION
  Report Type: Report from Study
  Country: GB (occurrence: GB)
  Receive Date: 20200108
  Receipt Date: 20200108
  Transmission Date: 20200409
  Serious: Yes (Other)
  Sender: FDA-Public Use
  Company Number: GB-EXELIXIS-XL18419020960

PATIENT
  Age: 70 Year
  Sex: Male
  Weight: 72 kg

DRUGS (4)
  1. CODEINE [Concomitant]
     Active Substance: CODEINE
     Dosage: PRN
  2. CABOZANTINIB [Suspect]
     Active Substance: CABOZANTINIB
     Dosage: 40 MG, QD
     Route: 048
     Dates: start: 20190522, end: 20190703
  3. ATORVASTATIN [Concomitant]
     Active Substance: ATORVASTATIN
     Dosage: 40 MG QD
  4. CABOZANTINIB [Suspect]
     Active Substance: CABOZANTINIB
     Indication: RENAL CELL CARCINOMA
     Dosage: 40 MG, QD
     Route: 048
     Dates: start: 20181114, end: 20190430

REACTIONS (3)
  - Renal impairment [Not Recovered/Not Resolved]
  - Chest discomfort [Recovered/Resolved]
  - Pneumonia [Recovered/Resolved]

NARRATIVE: CASE EVENT DATE: 20190430
